FAERS Safety Report 10891804 (Version 2)
Quarter: 2015Q1

REPORT INFORMATION
  Report Type: Report from Study
  Country: CA (occurrence: CA)
  Receive Date: 20150306
  Receipt Date: 20150324
  Transmission Date: 20150721
  Serious: Yes (Death, Hospitalization)
  Sender: FDA-Public Use
  Company Number: PHHY2015CA026042

PATIENT
  Age: 39 Year
  Sex: Male

DRUGS (1)
  1. SANDOSTATIN LAR DEPOT [Suspect]
     Active Substance: OCTREOTIDE ACETATE
     Indication: COLON CANCER METASTATIC
     Dosage: 30 MG, QMO
     Route: 030
     Dates: start: 20140709

REACTIONS (3)
  - Death [Fatal]
  - Terminal state [Unknown]
  - Product use issue [Unknown]

NARRATIVE: CASE EVENT DATE: 2014
